FAERS Safety Report 7129016-1 (Version None)
Quarter: 2010Q4

REPORT INFORMATION
  Report Type: 
  Country: None (occurrence: None)
  Receive Date: 20101130
  Receipt Date: 20101117
  Transmission Date: 20110411
  Serious: Yes (Life-Threatening)
  Sender: FDA-Public Use
  Company Number: GXKR2010US13065

PATIENT
  Age: 20 Month
  Sex: Female

DRUGS (1)
  1. VALPROIC ACID (NGX) [Suspect]
     Dosage: 10 G, ONCE/SINGLE
     Route: 048

REACTIONS (15)
  - ACCIDENTAL OVERDOSE [None]
  - ANAEMIA [None]
  - COAGULOPATHY [None]
  - ENDOTRACHEAL INTUBATION [None]
  - HAEMODIALYSIS [None]
  - HYPERAMMONAEMIA [None]
  - HYPERNATRAEMIA [None]
  - HYPOCALCAEMIA [None]
  - HYPOTENSION [None]
  - HYPOTHERMIA [None]
  - LOSS OF CONSCIOUSNESS [None]
  - METABOLIC ACIDOSIS [None]
  - MULTI-ORGAN FAILURE [None]
  - RESPIRATORY ACIDOSIS [None]
  - THROMBOCYTOPENIA [None]
